FAERS Safety Report 19418570 (Version 1)
Quarter: 2021Q2

REPORT INFORMATION
  Report Type: Spontaneous
  Country: ES (occurrence: ES)
  Receive Date: 20210615
  Receipt Date: 20210615
  Transmission Date: 20210717
  Serious: Yes (Disabling, Other)
  Sender: FDA-Public Use
  Company Number: ES-PFIZER INC-2021627286

PATIENT
  Age: 56 Year
  Sex: Female

DRUGS (10)
  1. ITRACONAZOL [Concomitant]
     Active Substance: ITRACONAZOLE
     Indication: VISCERAL LEISHMANIASIS
     Dosage: UNK
  2. MEGLUMINE ANTIMONATE [Suspect]
     Active Substance: MEGLUMINE ANTIMONIATE
     Dosage: UNK
  3. SODIUM STIBOGLUCONATE [Suspect]
     Active Substance: SODIUM STIBOGLUCONATE
     Indication: VISCERAL LEISHMANIASIS
     Dosage: UNK
  4. PAROMOMYCIN SULFATE. [Suspect]
     Active Substance: PAROMOMYCIN SULFATE
     Indication: VISCERAL LEISHMANIASIS
     Dosage: UNK
  5. AMPHOTERICIN?B [Suspect]
     Active Substance: AMPHOTERICIN B
     Indication: VISCERAL LEISHMANIASIS
     Dosage: UNK
  6. MILTEFOSINE [Suspect]
     Active Substance: MILTEFOSINE
     Dosage: UNK
  7. MILTEFOSINE [Suspect]
     Active Substance: MILTEFOSINE
     Indication: VISCERAL LEISHMANIASIS
     Dosage: UNK
  8. SODIUM STIBOGLUCONATE [Suspect]
     Active Substance: SODIUM STIBOGLUCONATE
     Dosage: UNK
  9. MEGLUMINE ANTIMONATE [Suspect]
     Active Substance: MEGLUMINE ANTIMONIATE
     Indication: VISCERAL LEISHMANIASIS
     Dosage: UNK
  10. INTERFERON GAMMA NOS [Concomitant]
     Active Substance: INTERFERON GAMMA
     Indication: VISCERAL LEISHMANIASIS
     Dosage: UNK

REACTIONS (9)
  - Myoclonus [Recovering/Resolving]
  - Loss of personal independence in daily activities [Unknown]
  - Neurotoxicity [Recovering/Resolving]
  - Generalised tonic-clonic seizure [Recovering/Resolving]
  - Pyrexia [Recovering/Resolving]
  - Gait disturbance [Unknown]
  - Reflexes abnormal [Recovering/Resolving]
  - Tremor [Recovering/Resolving]
  - Off label use [Unknown]
